FAERS Safety Report 7379668-6 (Version None)
Quarter: 2011Q1

REPORT INFORMATION
  Report Type: 
  Country: None (occurrence: None)
  Receive Date: 20110329
  Receipt Date: 20110323
  Transmission Date: 20110831
  Serious: No
  Sender: FDA-Public Use
  Company Number: US-PFIZER INC-2011064934

PATIENT
  Sex: Male

DRUGS (1)
  1. DEPO-TESTOSTERONE [Suspect]
     Dosage: 0.6 MG, 2X/WEEK
     Route: 030
     Dates: start: 20090101

REACTIONS (1)
  - INJECTION SITE REACTION [None]
